FAERS Safety Report 9549510 (Version 1)
Quarter: 2013Q3

REPORT INFORMATION
  Report Type: Spontaneous
  Country: US (occurrence: US)
  Receive Date: 20130924
  Receipt Date: 20130924
  Transmission Date: 20140515
  Serious: No
  Sender: FDA-Public Use
  Company Number: US-009507513-1208USA012189

PATIENT
  Sex: Female

DRUGS (1)
  1. DECADRON ELIXIR [Suspect]

REACTIONS (1)
  - Hypoxia [Unknown]
